FAERS Safety Report 8835800 (Version 1)
Quarter: 2012Q4

REPORT INFORMATION
  Report Type: 
  Country: US (occurrence: US)
  Receive Date: 20121011
  Receipt Date: 20121011
  Transmission Date: 20130627
  Serious: Yes (Death)
  Sender: FDA-Public Use
  Company Number: US-NAPPMUNDI-DEU-2012-0009554

PATIENT

DRUGS (1)
  1. HYDROMORPHONE HCL [Suspect]
     Indication: PROCEDURAL PAIN
     Dosage: 4 mg, see text
     Route: 065

REACTIONS (2)
  - Wrong drug administered [Fatal]
  - Medication error [None]
